FAERS Safety Report 21462104 (Version 1)
Quarter: 2022Q4

REPORT INFORMATION
  Report Type: Spontaneous
  Country: CA (occurrence: None)
  Receive Date: 20221016
  Receipt Date: 20221016
  Transmission Date: 20230112
  Serious: Yes (Death)
  Sender: FDA-Public Use
  Company Number: CA-ROCHE-3200296

PATIENT

DRUGS (2)
  1. BEVACIZUMAB [Suspect]
     Active Substance: BEVACIZUMAB
     Indication: Cerebral disorder
     Route: 065
  2. DEXAMETHASONE [Concomitant]
     Active Substance: DEXAMETHASONE
     Indication: Cerebral disorder
     Route: 065

REACTIONS (9)
  - Death [Fatal]
  - Deep vein thrombosis [Fatal]
  - Ischaemic stroke [Fatal]
  - Metastatic malignant melanoma [Fatal]
  - Neoplasm progression [Fatal]
  - Off label use [Fatal]
  - Pulmonary embolism [Fatal]
  - Therapy non-responder [Fatal]
  - Wound dehiscence [Fatal]
